FAERS Safety Report 6447817-X (Version None)
Quarter: 2009Q4

REPORT INFORMATION
  Report Type: 
  Country: None (occurrence: None)
  Receive Date: 20091120
  Receipt Date: 20090827
  Transmission Date: 20100525
  Serious: No
  Sender: FDA-Public Use
  Company Number: A0804754A

PATIENT
  Age: 58 Year
  Sex: Female

DRUGS (2)
  1. VERAMYST [Suspect]
     Dosage: 1PUFF PER DAY
     Route: 045
     Dates: start: 20090701
  2. ALLEGRA [Concomitant]

REACTIONS (1)
  - DRUG INEFFECTIVE [None]
